FAERS Safety Report 15568591 (Version 1)
Quarter: 2018Q4

REPORT INFORMATION
  Report Type: Other
  Country: GB (occurrence: GB)
  Receive Date: 20181031
  Receipt Date: 20181031
  Transmission Date: 20190205
  Serious: No
  Sender: FDA-Public Use
  Company Number: GB-LUPIN PHARMACEUTICALS INC.-2018-02085

PATIENT
  Age: 62 Year
  Sex: Male
  Weight: 81 kg

DRUGS (2)
  1. LISINOPRIL. [Suspect]
     Active Substance: LISINOPRIL
     Indication: BLOOD PRESSURE ABNORMAL
     Dosage: 10 MG, UNK
     Route: 048
     Dates: start: 20170706, end: 20170915
  2. CANDESARTAN. [Suspect]
     Active Substance: CANDESARTAN
     Indication: BLOOD PRESSURE ABNORMAL
     Dosage: 4 MG, UNK
     Route: 048
     Dates: start: 20170915, end: 20171117

REACTIONS (3)
  - Tremor [Recovered/Resolved]
  - Hyposmia [Recovered/Resolved]
  - Depressed mood [Recovered/Resolved]
